FAERS Safety Report 20962662 (Version 1)
Quarter: 2022Q2

REPORT INFORMATION
  Report Type: Spontaneous
  Country: US (occurrence: None)
  Receive Date: 20220615
  Receipt Date: 20220615
  Transmission Date: 20220720
  Serious: Yes (Hospitalization)
  Sender: FDA-Public Use
  Company Number: None

PATIENT
  Age: 54 Month
  Sex: Female
  Weight: 45.45 kg

DRUGS (16)
  1. PIQRAY [Suspect]
     Active Substance: ALPELISIB
     Indication: Breast cancer
     Dosage: FREQUENCY : DAILY;?
     Route: 048
     Dates: start: 20220518, end: 20220609
  2. ATIVAN [Concomitant]
     Active Substance: LORAZEPAM
  3. CALCIUM\VITAMIN D [Concomitant]
     Active Substance: CALCIUM\VITAMIN D
  4. CARAFATE [Concomitant]
     Active Substance: SUCRALFATE
  5. CLARITIN [Concomitant]
     Active Substance: LORATADINE
  6. CYANOCOBALAMIN\FOLIC ACID\PYRIDOXINE HYDROCHLORIDE [Concomitant]
     Active Substance: CYANOCOBALAMIN\FOLIC ACID\PYRIDOXINE HYDROCHLORIDE
  7. FASLODEX [Concomitant]
     Active Substance: FULVESTRANT
  8. LACTULOSE [Concomitant]
     Active Substance: LACTULOSE
  9. METFORMIN [Concomitant]
     Active Substance: METFORMIN HYDROCHLORIDE
  10. NALTREXONE [Concomitant]
     Active Substance: NALTREXONE
  11. NYSTATIN [Concomitant]
     Active Substance: NYSTATIN
  12. OMEPRAZOLE [Concomitant]
     Active Substance: OMEPRAZOLE
  13. PROCHLORPERAZINE [Concomitant]
     Active Substance: PROCHLORPERAZINE
  14. SENNA S [Concomitant]
     Active Substance: DOCUSATE SODIUM\SENNA LEAF
  15. XTAMPZA [Concomitant]
     Active Substance: OXYCODONE
  16. ZOFRAN [Concomitant]
     Active Substance: ONDANSETRON HYDROCHLORIDE

REACTIONS (6)
  - Rash erythematous [None]
  - Lip swelling [None]
  - Blister [None]
  - Skin exfoliation [None]
  - Pyrexia [None]
  - Sjogren^s syndrome [None]

NARRATIVE: CASE EVENT DATE: 20220604
